FAERS Safety Report 25212988 (Version 1)
Quarter: 2025Q2

REPORT INFORMATION
  Report Type: Spontaneous
  Country: GB (occurrence: GB)
  Receive Date: 20250418
  Receipt Date: 20250418
  Transmission Date: 20250716
  Serious: Yes (Other)
  Sender: MYLAN
  Company Number: GB-MHRA-TPP41057573C10246436YC1744643046796

PATIENT
  Age: 85 Year
  Sex: Male
  Weight: 84 kg

DRUGS (64)
  1. EPLERENONE [Suspect]
     Active Substance: EPLERENONE
     Indication: Ill-defined disorder
  2. EPLERENONE [Suspect]
     Active Substance: EPLERENONE
     Route: 065
  3. EPLERENONE [Suspect]
     Active Substance: EPLERENONE
     Route: 065
  4. EPLERENONE [Suspect]
     Active Substance: EPLERENONE
  5. AMOXICILLIN [Concomitant]
     Active Substance: AMOXICILLIN
     Indication: Ill-defined disorder
     Dosage: 1 DOSAGE FORM, TID (TAKE ONE 3 TIMES/DAY )
     Dates: start: 20250117, end: 20250122
  6. AMOXICILLIN [Concomitant]
     Active Substance: AMOXICILLIN
     Dosage: 1 DOSAGE FORM, TID (TAKE ONE 3 TIMES/DAY )
     Route: 065
     Dates: start: 20250117, end: 20250122
  7. AMOXICILLIN [Concomitant]
     Active Substance: AMOXICILLIN
     Dosage: 1 DOSAGE FORM, TID (TAKE ONE 3 TIMES/DAY )
     Route: 065
     Dates: start: 20250117, end: 20250122
  8. AMOXICILLIN [Concomitant]
     Active Substance: AMOXICILLIN
     Dosage: 1 DOSAGE FORM, TID (TAKE ONE 3 TIMES/DAY )
     Dates: start: 20250117, end: 20250122
  9. HYDROXOCOBALAMIN [Concomitant]
     Active Substance: HYDROXOCOBALAMIN
     Indication: Ill-defined disorder
  10. HYDROXOCOBALAMIN [Concomitant]
     Active Substance: HYDROXOCOBALAMIN
     Route: 065
  11. HYDROXOCOBALAMIN [Concomitant]
     Active Substance: HYDROXOCOBALAMIN
     Route: 065
  12. HYDROXOCOBALAMIN [Concomitant]
     Active Substance: HYDROXOCOBALAMIN
  13. Cetraben [Concomitant]
     Indication: Ill-defined disorder
  14. Cetraben [Concomitant]
     Route: 065
  15. Cetraben [Concomitant]
     Route: 065
  16. Cetraben [Concomitant]
  17. PARAFFIN [Concomitant]
     Active Substance: PARAFFIN
     Indication: Ill-defined disorder
  18. PARAFFIN [Concomitant]
     Active Substance: PARAFFIN
     Route: 065
  19. PARAFFIN [Concomitant]
     Active Substance: PARAFFIN
     Route: 065
  20. PARAFFIN [Concomitant]
     Active Substance: PARAFFIN
  21. SIMVASTATIN [Concomitant]
     Active Substance: SIMVASTATIN
     Indication: Ill-defined disorder
     Dosage: 1 DOSAGE FORM, PM, (TAKE ONE AT NIGHT)
     Dates: start: 20240323
  22. SIMVASTATIN [Concomitant]
     Active Substance: SIMVASTATIN
     Dosage: 1 DOSAGE FORM, PM, (TAKE ONE AT NIGHT)
     Route: 065
     Dates: start: 20240323
  23. SIMVASTATIN [Concomitant]
     Active Substance: SIMVASTATIN
     Dosage: 1 DOSAGE FORM, PM, (TAKE ONE AT NIGHT)
     Route: 065
     Dates: start: 20240323
  24. SIMVASTATIN [Concomitant]
     Active Substance: SIMVASTATIN
     Dosage: 1 DOSAGE FORM, PM, (TAKE ONE AT NIGHT)
     Dates: start: 20240323
  25. TAMSULOSIN HYDROCHLORIDE [Concomitant]
     Active Substance: TAMSULOSIN HYDROCHLORIDE
     Indication: Ill-defined disorder
     Dosage: 1 DOSAGE FORM, QD, (TAKE ONE DAILY)
     Dates: start: 20240703
  26. TAMSULOSIN HYDROCHLORIDE [Concomitant]
     Active Substance: TAMSULOSIN HYDROCHLORIDE
     Dosage: 1 DOSAGE FORM, QD, (TAKE ONE DAILY)
     Route: 065
     Dates: start: 20240703
  27. TAMSULOSIN HYDROCHLORIDE [Concomitant]
     Active Substance: TAMSULOSIN HYDROCHLORIDE
     Dosage: 1 DOSAGE FORM, QD, (TAKE ONE DAILY)
     Route: 065
     Dates: start: 20240703
  28. TAMSULOSIN HYDROCHLORIDE [Concomitant]
     Active Substance: TAMSULOSIN HYDROCHLORIDE
     Dosage: 1 DOSAGE FORM, QD, (TAKE ONE DAILY)
     Dates: start: 20240703
  29. ASPIRIN [Concomitant]
     Active Substance: ASPIRIN
     Indication: Ill-defined disorder
     Dosage: 1 DOSAGE FORM, QD, (TAKE ONE DAILY)
     Dates: start: 20240821
  30. ASPIRIN [Concomitant]
     Active Substance: ASPIRIN
     Dosage: 1 DOSAGE FORM, QD, (TAKE ONE DAILY)
     Route: 065
     Dates: start: 20240821
  31. ASPIRIN [Concomitant]
     Active Substance: ASPIRIN
     Dosage: 1 DOSAGE FORM, QD, (TAKE ONE DAILY)
     Route: 065
     Dates: start: 20240821
  32. ASPIRIN [Concomitant]
     Active Substance: ASPIRIN
     Dosage: 1 DOSAGE FORM, QD, (TAKE ONE DAILY)
     Dates: start: 20240821
  33. BISOPROLOL [Concomitant]
     Active Substance: BISOPROLOL
     Indication: Ill-defined disorder
     Dosage: 1 DOSAGE FORM, QD, (TAKE ONE DAILY)
     Dates: start: 20240821
  34. BISOPROLOL [Concomitant]
     Active Substance: BISOPROLOL
     Dosage: 1 DOSAGE FORM, QD, (TAKE ONE DAILY)
     Route: 065
     Dates: start: 20240821
  35. BISOPROLOL [Concomitant]
     Active Substance: BISOPROLOL
     Dosage: 1 DOSAGE FORM, QD, (TAKE ONE DAILY)
     Route: 065
     Dates: start: 20240821
  36. BISOPROLOL [Concomitant]
     Active Substance: BISOPROLOL
     Dosage: 1 DOSAGE FORM, QD, (TAKE ONE DAILY)
     Dates: start: 20240821
  37. LOSARTAN [Concomitant]
     Active Substance: LOSARTAN
     Indication: Ill-defined disorder
     Dosage: 1 DOSAGE FORM, QD, (TAKE ONE DAILY)
     Dates: start: 20240821
  38. LOSARTAN [Concomitant]
     Active Substance: LOSARTAN
     Dosage: 1 DOSAGE FORM, QD, (TAKE ONE DAILY)
     Route: 065
     Dates: start: 20240821
  39. LOSARTAN [Concomitant]
     Active Substance: LOSARTAN
     Dosage: 1 DOSAGE FORM, QD, (TAKE ONE DAILY)
     Route: 065
     Dates: start: 20240821
  40. LOSARTAN [Concomitant]
     Active Substance: LOSARTAN
     Dosage: 1 DOSAGE FORM, QD, (TAKE ONE DAILY)
     Dates: start: 20240821
  41. DORZOLAMIDE [Concomitant]
     Active Substance: DORZOLAMIDE
     Indication: Ill-defined disorder
     Dosage: 2 DOSAGE FORM, BID (INSTIL ONE DROP TWICE A DAY TO BOTH EYES
     Dates: start: 20240920
  42. DORZOLAMIDE [Concomitant]
     Active Substance: DORZOLAMIDE
     Dosage: 2 DOSAGE FORM, BID (INSTIL ONE DROP TWICE A DAY TO BOTH EYES
     Route: 065
     Dates: start: 20240920
  43. DORZOLAMIDE [Concomitant]
     Active Substance: DORZOLAMIDE
     Dosage: 2 DOSAGE FORM, BID (INSTIL ONE DROP TWICE A DAY TO BOTH EYES
     Route: 065
     Dates: start: 20240920
  44. DORZOLAMIDE [Concomitant]
     Active Substance: DORZOLAMIDE
     Dosage: 2 DOSAGE FORM, BID (INSTIL ONE DROP TWICE A DAY TO BOTH EYES
     Dates: start: 20240920
  45. TAFLUPROST [Concomitant]
     Active Substance: TAFLUPROST
     Indication: Ill-defined disorder
     Dosage: 2 DOSAGE FORM, PM (ONE DROP ONCE IN THE EVENING INTO BOTH EYES)
     Dates: start: 20240920
  46. TAFLUPROST [Concomitant]
     Active Substance: TAFLUPROST
     Dosage: 2 DOSAGE FORM, PM (ONE DROP ONCE IN THE EVENING INTO BOTH EYES)
     Route: 065
     Dates: start: 20240920
  47. TAFLUPROST [Concomitant]
     Active Substance: TAFLUPROST
     Dosage: 2 DOSAGE FORM, PM (ONE DROP ONCE IN THE EVENING INTO BOTH EYES)
     Route: 065
     Dates: start: 20240920
  48. TAFLUPROST [Concomitant]
     Active Substance: TAFLUPROST
     Dosage: 2 DOSAGE FORM, PM (ONE DROP ONCE IN THE EVENING INTO BOTH EYES)
     Dates: start: 20240920
  49. METFORMIN [Concomitant]
     Active Substance: METFORMIN HYDROCHLORIDE
     Indication: Ill-defined disorder
     Dosage: 1 DOSAGE FORM, BID, (TAKE ONE TWICE A DAY)
     Dates: start: 20241203
  50. METFORMIN [Concomitant]
     Active Substance: METFORMIN HYDROCHLORIDE
     Dosage: 1 DOSAGE FORM, BID, (TAKE ONE TWICE A DAY)
     Route: 065
     Dates: start: 20241203
  51. METFORMIN [Concomitant]
     Active Substance: METFORMIN HYDROCHLORIDE
     Dosage: 1 DOSAGE FORM, BID, (TAKE ONE TWICE A DAY)
     Route: 065
     Dates: start: 20241203
  52. METFORMIN [Concomitant]
     Active Substance: METFORMIN HYDROCHLORIDE
     Dosage: 1 DOSAGE FORM, BID, (TAKE ONE TWICE A DAY)
     Dates: start: 20241203
  53. FUROSEMIDE [Concomitant]
     Active Substance: FUROSEMIDE
     Indication: Ill-defined disorder
     Dosage: 1 DOSAGE FORM, AM ( TAKE ONE EACH MORNING)
     Dates: start: 20241212
  54. FUROSEMIDE [Concomitant]
     Active Substance: FUROSEMIDE
     Dosage: 1 DOSAGE FORM, AM ( TAKE ONE EACH MORNING)
     Route: 065
     Dates: start: 20241212
  55. FUROSEMIDE [Concomitant]
     Active Substance: FUROSEMIDE
     Dosage: 1 DOSAGE FORM, AM ( TAKE ONE EACH MORNING)
     Route: 065
     Dates: start: 20241212
  56. FUROSEMIDE [Concomitant]
     Active Substance: FUROSEMIDE
     Dosage: 1 DOSAGE FORM, AM ( TAKE ONE EACH MORNING)
     Dates: start: 20241212
  57. DAPAGLIFLOZIN [Concomitant]
     Active Substance: DAPAGLIFLOZIN
     Indication: Ill-defined disorder
     Dosage: 1 DOSAGE FORM, QD, (TAKE ONE DAILY VERY RARELY, THIS MEDICATION CAN)
     Dates: start: 20250115
  58. DAPAGLIFLOZIN [Concomitant]
     Active Substance: DAPAGLIFLOZIN
     Dosage: 1 DOSAGE FORM, QD, (TAKE ONE DAILY VERY RARELY, THIS MEDICATION CAN)
     Route: 065
     Dates: start: 20250115
  59. DAPAGLIFLOZIN [Concomitant]
     Active Substance: DAPAGLIFLOZIN
     Dosage: 1 DOSAGE FORM, QD, (TAKE ONE DAILY VERY RARELY, THIS MEDICATION CAN)
     Route: 065
     Dates: start: 20250115
  60. DAPAGLIFLOZIN [Concomitant]
     Active Substance: DAPAGLIFLOZIN
     Dosage: 1 DOSAGE FORM, QD, (TAKE ONE DAILY VERY RARELY, THIS MEDICATION CAN)
     Dates: start: 20250115
  61. EPLERENONE [Concomitant]
     Active Substance: EPLERENONE
     Indication: Ill-defined disorder
     Dosage: 0.5 DOSAGE FORM, QD (HALF A TABLET ONCE DAILY)
     Dates: start: 20250303, end: 20250414
  62. EPLERENONE [Concomitant]
     Active Substance: EPLERENONE
     Dosage: 0.5 DOSAGE FORM, QD (HALF A TABLET ONCE DAILY)
     Route: 065
     Dates: start: 20250303, end: 20250414
  63. EPLERENONE [Concomitant]
     Active Substance: EPLERENONE
     Dosage: 0.5 DOSAGE FORM, QD (HALF A TABLET ONCE DAILY)
     Route: 065
     Dates: start: 20250303, end: 20250414
  64. EPLERENONE [Concomitant]
     Active Substance: EPLERENONE
     Dosage: 0.5 DOSAGE FORM, QD (HALF A TABLET ONCE DAILY)
     Dates: start: 20250303, end: 20250414

REACTIONS (1)
  - Gastroenteritis [Unknown]

NARRATIVE: CASE EVENT DATE: 20250414
